FAERS Safety Report 9386681 (Version 1)
Quarter: 2013Q3

REPORT INFORMATION
  Report Type: Spontaneous
  Country: US (occurrence: None)
  Receive Date: 20130703
  Receipt Date: 20130703
  Transmission Date: 20140515
  Serious: Yes (Hospitalization)
  Sender: FDA-Public Use
  Company Number: None

PATIENT
  Age: 66 Year
  Sex: Female
  Weight: 69 kg

DRUGS (15)
  1. DIVALPROEX [Suspect]
     Indication: AFFECTIVE DISORDER
     Route: 048
  2. ACETAMINOPHEN [Concomitant]
  3. ASCORBIC ACID [Concomitant]
  4. ATENOLOL [Concomitant]
  5. ATORVASTATIN [Concomitant]
  6. BENZTROPINE [Concomitant]
  7. CALCIUM SUPPLEMENT [Concomitant]
  8. CHOLECALCIFEROL [Concomitant]
  9. CHOLINE-MAGNESIUM TRISALICYLATE [Concomitant]
  10. DIPHENHYDRAMINE [Concomitant]
  11. VITAMIN B12 [Concomitant]
  12. FLAXSEED OIL [Concomitant]
  13. FLURAZEPMAN [Concomitant]
  14. VITAMIN A [Concomitant]
  15. LISINOPRIL/HCTZ [Concomitant]

REACTIONS (3)
  - Rhabdomyolysis [None]
  - Toxicity to various agents [None]
  - Medication error [None]
